FAERS Safety Report 12502944 (Version 3)
Quarter: 2016Q3

REPORT INFORMATION
  Report Type: Spontaneous
  Country: JP (occurrence: JP)
  Receive Date: 20160628
  Receipt Date: 20160718
  Transmission Date: 20161109
  Serious: Yes (Other)
  Sender: FDA-Public Use
  Company Number: JP-ROCHE-1784295

PATIENT
  Age: 74 Year
  Sex: Female
  Weight: 48 kg

DRUGS (3)
  1. LUCENTIS [Suspect]
     Active Substance: RANIBIZUMAB
     Indication: RETINAL VEIN OCCLUSION
     Dosage: UNK
     Route: 050
     Dates: start: 20150401
  2. TELMISARTAN. [Concomitant]
     Active Substance: TELMISARTAN
     Dosage: 40 MG, QD
     Route: 048
  3. TELMISARTAN. [Concomitant]
     Active Substance: TELMISARTAN
     Indication: BLOOD PRESSURE SYSTOLIC INCREASED
     Dosage: 20 MG, QD
     Route: 048

REACTIONS (5)
  - Blood pressure systolic increased [Recovered/Resolved]
  - Brain natriuretic peptide increased [Unknown]
  - Blood pressure increased [Unknown]
  - Vision blurred [Recovering/Resolving]
  - Macular oedema [Recovering/Resolving]

NARRATIVE: CASE EVENT DATE: 20150618
